FAERS Safety Report 4716517-6 (Version None)
Quarter: 2005Q3

REPORT INFORMATION
  Report Type: 
  Country: None (occurrence: None)
  Receive Date: 20050719
  Receipt Date: 20050628
  Transmission Date: 20060218
  Serious: Yes (Death, Hospitalization)
  Sender: FDA-Public Use
  Company Number: BW-BRISTOL-MYERS SQUIBB COMPANY-13017850

PATIENT
  Age: 35 Year
  Sex: Male

DRUGS (2)
  1. EFAVIRENZ [Suspect]
     Indication: HIV INFECTION
     Route: 048
     Dates: start: 20050315, end: 20050607
  2. COMBIVIR [Suspect]
     Indication: HIV INFECTION
     Dosage: DOSAGE FORM-TABLETS.
     Route: 048
     Dates: start: 20050315, end: 20050607

REACTIONS (4)
  - CARDIAC FAILURE CONGESTIVE [None]
  - DEATH [None]
  - HEPATOTOXICITY [None]
  - KAPOSI'S SARCOMA [None]
